FAERS Safety Report 7654215-X (Version None)
Quarter: 2011Q3

REPORT INFORMATION
  Report Type: 
  Country: None (occurrence: None)
  Receive Date: 20110803
  Receipt Date: 20110726
  Transmission Date: 20111222
  Serious: Yes (Hospitalization)
  Sender: FDA-Public Use
  Company Number: US-SANOFI-AVENTIS-2011SA043796

PATIENT
  Age: 84 Year
  Sex: Female
  Weight: 62.6 kg

DRUGS (10)
  1. LANTUS [Suspect]
     Indication: TYPE 2 DIABETES MELLITUS
     Dosage: 40 UNITS IN THE AM AND 27 UNITS IN THE PM
     Route: 058
  2. CARVEDIOL [Concomitant]
     Dosage: TAKES 6.25 (UNITS NOT PROVIDED) TWICE A DAY
     Route: 048
  3. SIMVASTATIN [Concomitant]
     Route: 048
  4. LISINOPRIL [Concomitant]
     Route: 048
  5. ASPIRIN [Concomitant]
     Route: 048
  6. DIGOXIN [Concomitant]
     Route: 048
  7. NEXIUM [Concomitant]
     Route: 048
  8. FUROSEMIDE [Concomitant]
     Route: 048
  9. POTASSIUM [Concomitant]
     Route: 048
  10. ADVAIR DISKUS 100/50 [Concomitant]
     Dosage: DOSAGE: 100/50
     Route: 055

REACTIONS (1)
  - LIPOMA [None]
